FAERS Safety Report 23985719 (Version 1)
Quarter: 2024Q2

REPORT INFORMATION
  Report Type: Spontaneous
  Country: IN (occurrence: IN)
  Receive Date: 20240618
  Receipt Date: 20240618
  Transmission Date: 20240716
  Serious: Yes (Other)
  Sender: FDA-Public Use
  Company Number: IN-PFIZER INC-PV202300183662

PATIENT
  Age: 57 Year
  Sex: Male

DRUGS (3)
  1. INLYTA [Suspect]
     Active Substance: AXITINIB
     Indication: Renal cell carcinoma
     Dosage: 5 MG, 2X/DAY
     Route: 048
  2. KEYTRUDA [Concomitant]
     Active Substance: PEMBROLIZUMAB
     Dosage: UNK
  3. ZYTEE [BENZALKONIUM CHLORIDE;CHOLINE SALICYLATE] [Concomitant]
     Dosage: UNK

REACTIONS (3)
  - Seizure [Unknown]
  - Brain oedema [Unknown]
  - Asthenia [Unknown]
